FAERS Safety Report 6000626-8 (Version None)
Quarter: 2008Q4

REPORT INFORMATION
  Report Type: 
  Country: None (occurrence: None)
  Receive Date: 20081211
  Receipt Date: 20081127
  Transmission Date: 20090506
  Serious: Yes (Hospitalization)
  Sender: FDA-Public Use
  Company Number: MPS1-1000142

PATIENT
  Age: 7 Year
  Sex: Male
  Weight: 16.5 kg

DRUGS (3)
  1. ALDURAZYME (LARONIDASE) CONCENTRATE FOR SOLUTION [Suspect]
     Indication: MUCOPOLYSACCHARIDOSIS
     Dosage: 0.51 MG/KG, Q2W, INTRAVENOUS
     Route: 042
     Dates: start: 20061117
  2. LEVOTHYROXINE SODIUM [Concomitant]
  3. MUCOPOLYSACCHARIDOSIS (NON CDE) [Concomitant]

REACTIONS (2)
  - CATHETER RELATED COMPLICATION [None]
  - PNEUMONIA [None]
